FAERS Safety Report 5206754-9 (Version None)
Quarter: 2007Q1

REPORT INFORMATION
  Report Type: 
  Country: None (occurrence: None)
  Receive Date: 20070108
  Receipt Date: 20061227
  Transmission Date: 20070707
  Serious: Yes (Life-Threatening, Hospitalization, Other)
  Sender: FDA-Public Use
  Company Number: HQWYE070202JAN07

PATIENT
  Age: 70 Year
  Sex: Female

DRUGS (14)
  1. MYLOTARG [Suspect]
     Indication: ACUTE MYELOID LEUKAEMIA RECURRENT
     Dosage: 9 MG/M^2 1X PER 1 DAY INTRAVENOUS DRIP
     Route: 041
     Dates: start: 20060517, end: 20060517
  2. RABEPRAZOLE SODIUM [Concomitant]
  3. RABEPRAZOLE SODIUM [Concomitant]
  4. ISALON (ALDIOXA) [Concomitant]
  5. VFEND [Concomitant]
  6. PANTOSIN (PANTETHINE) [Concomitant]
  7. MAGNESIUM OXIDE (MAGNESIUM OXIDE) [Concomitant]
  8. NEOPHAGEN (GLYCYRRHIZINATE POTASSIUM) [Concomitant]
  9. NEUPOGEN [Concomitant]
  10. SOHVITA (VITAMINS NOS) [Concomitant]
  11. MEROPEN (MEROPENEM) [Concomitant]
  12. AMIKACIN [Concomitant]
  13. HYOSCINE HBR HYT [Concomitant]
  14. SOSEGON (PENTAZOCINE) [Concomitant]

REACTIONS (10)
  - ACUTE MYELOID LEUKAEMIA [None]
  - DISEASE PROGRESSION [None]
  - ENTERITIS [None]
  - FEBRILE NEUTROPENIA [None]
  - GASTROINTESTINAL HAEMORRHAGE [None]
  - HYPOKALAEMIA [None]
  - HYPONATRAEMIA [None]
  - LIVER DISORDER [None]
  - LYMPHOCYTE PERCENTAGE INCREASED [None]
  - WHITE BLOOD CELL COUNT DECREASED [None]
